FAERS Safety Report 10878157 (Version 1)
Quarter: 2015Q1

REPORT INFORMATION
  Report Type: Spontaneous
  Country: US (occurrence: US)
  Receive Date: 20150302
  Receipt Date: 20150302
  Transmission Date: 20150721
  Serious: No
  Sender: FDA-Public Use
  Company Number: US-ABBVIE-14P-163-1237925-00

PATIENT
  Sex: Male
  Weight: 95.34 kg

DRUGS (10)
  1. ZINC [Concomitant]
     Active Substance: ZINC\ZINC CHLORIDE
     Indication: PRODUCT USED FOR UNKNOWN INDICATION
  2. LEVOTHYROXINE SODIUM. [Suspect]
     Active Substance: LEVOTHYROXINE SODIUM
     Indication: HYPOTHYROIDISM
     Dosage: TAKES 1/2 TABLET, UNSURE OF THE MANUFACTURER
     Route: 048
     Dates: start: 2013
  3. FLEXERIL [Concomitant]
     Active Substance: CYCLOBENZAPRINE HYDROCHLORIDE
     Indication: PRODUCT USED FOR UNKNOWN INDICATION
  4. LEVOTHYROXINE SODIUM. [Concomitant]
     Active Substance: LEVOTHYROXINE SODIUM
     Indication: THYROID DISORDER
  5. VITAMIN C [Concomitant]
     Active Substance: ASCORBIC ACID
     Indication: PRODUCT USED FOR UNKNOWN INDICATION
  6. LIBRIUM [Concomitant]
     Active Substance: CHLORDIAZEPOXIDE HYDROCHLORIDE
     Indication: PANIC ATTACK
     Dosage: WEANING OFF OF CURRENTLY
  7. ATIVAN [Concomitant]
     Active Substance: LORAZEPAM
     Indication: PRODUCT USED FOR UNKNOWN INDICATION
     Dosage: USING MAYBE 10 PILLS A YEAR
  8. MS CONTIN [Concomitant]
     Active Substance: MORPHINE SULFATE
     Indication: PRODUCT USED FOR UNKNOWN INDICATION
  9. ANDROGEL [Suspect]
     Active Substance: TESTOSTERONE
     Indication: BLOOD TESTOSTERONE DECREASED
     Dosage: 5 G AND 2.5 G, TAKES 7.5 GRAMS TOTAL, OCCASIONALLY ALTERNATING DOSES
     Route: 061
     Dates: start: 201301
  10. ANDROGEL [Suspect]
     Active Substance: TESTOSTERONE
     Indication: BLOOD TESTOSTERONE DECREASED
     Dosage: 2.5 GRAMS, OCCASIONALLY ALTERNATING DOSES
     Route: 061
     Dates: start: 201301

REACTIONS (10)
  - Intercepted drug administration error [Not Recovered/Not Resolved]
  - Libido increased [Not Recovered/Not Resolved]
  - Fatigue [Recovered/Resolved]
  - Depression [Recovering/Resolving]
  - Breast pain [Recovering/Resolving]
  - Heart rate irregular [Not Recovered/Not Resolved]
  - Nipple pain [Recovering/Resolving]
  - Therapeutic response unexpected [Not Recovered/Not Resolved]
  - Hyperhidrosis [Recovered/Resolved]
  - Breast enlargement [Not Recovered/Not Resolved]

NARRATIVE: CASE EVENT DATE: 2013
